FAERS Safety Report 20729072 (Version 4)
Quarter: 2022Q3

REPORT INFORMATION
  Report Type: Report from Study
  Country: US (occurrence: US)
  Receive Date: 20220420
  Receipt Date: 20220726
  Transmission Date: 20221027
  Serious: Yes (Other)
  Sender: FDA-Public Use
  Company Number: US-BRISTOL-MYERS SQUIBB COMPANY-2022-022076

PATIENT
  Age: 62 Year
  Sex: Female
  Weight: 117.12 kg

DRUGS (17)
  1. REVLIMID [Suspect]
     Active Substance: LENALIDOMIDE
     Indication: Plasma cell myeloma
     Dosage: FREQUENCY FOR 14 DAYS 7 DAYS OFF
     Route: 048
     Dates: start: 202203
  2. REVLIMID [Suspect]
     Active Substance: LENALIDOMIDE
     Dosage: FOR 14 DAYS 7 DAYS OFF
     Route: 048
  3. VELCADE [Suspect]
     Active Substance: BORTEZOMIB
     Indication: Product used for unknown indication
     Route: 065
     Dates: start: 20220322
  4. DEXAMETHASONE ACETATE [Concomitant]
     Active Substance: DEXAMETHASONE ACETATE
  5. ZOLEDRONIC ACID [Concomitant]
     Active Substance: ZOLEDRONIC ACID
  6. CALCIUM [Concomitant]
     Active Substance: CALCIUM
  7. OCUVITE [ASCORBIC ACID;BETACAROTENE;COPPER;TOCOFERSOLAN;ZINC] [Concomitant]
  8. HYDROCORTISONE [Concomitant]
     Active Substance: HYDROCORTISONE
  9. CALCITONIN SALMON [Concomitant]
     Active Substance: CALCITONIN SALMON
  10. VITAMINS [Concomitant]
     Active Substance: VITAMINS
  11. ASPIRIN [Concomitant]
     Active Substance: ASPIRIN
  12. PEPCID [Concomitant]
     Active Substance: FAMOTIDINE
  13. FISH OIL [Concomitant]
     Active Substance: FISH OIL
  14. EMNORM [METFORMIN] [Concomitant]
  15. ACICLOVIR-BC [ACICLOVIR] [Concomitant]
  16. LOSARTAN POTASSIUM [Concomitant]
     Active Substance: LOSARTAN POTASSIUM
  17. PROCHLORPERAZINE EDISYLATE [Concomitant]
     Active Substance: PROCHLORPERAZINE EDISYLATE

REACTIONS (5)
  - Drug ineffective [Unknown]
  - Spinal cord disorder [Unknown]
  - Bone disorder [Unknown]
  - Rash [Unknown]
  - Off label use [Unknown]

NARRATIVE: CASE EVENT DATE: 20220330
